FAERS Safety Report 11929835 (Version 2)
Quarter: 2016Q2

REPORT INFORMATION
  Report Type: Spontaneous
  Country: None (occurrence: DO)
  Receive Date: 20160120
  Receipt Date: 20160420
  Transmission Date: 20160815
  Serious: Yes (Other)
  Sender: FDA-Public Use
  Company Number: DO-MERCK KGAA-1046625

PATIENT

DRUGS (1)
  1. NOVOTHYROX [Suspect]
     Active Substance: LEVOTHYROXINE SODIUM

REACTIONS (6)
  - Weight decreased [None]
  - Tachycardia [None]
  - Bladder disorder [None]
  - Feeling hot [None]
  - Fallopian tube disorder [None]
  - Menstrual disorder [None]
